FAERS Safety Report 7639361-9 (Version None)
Quarter: 2011Q3

REPORT INFORMATION
  Report Type: 
  Country: None (occurrence: None)
  Receive Date: 20110722
  Receipt Date: 20110707
  Transmission Date: 20111222
  Serious: Yes (Other)
  Sender: FDA-Public Use
  Company Number: GER/UKI/11/0018979

PATIENT
  Age: 84 Year
  Sex: Female

DRUGS (8)
  1. SALMETEROL (SALMETEROL) [Concomitant]
  2. AMLODIPINE [Concomitant]
  3. FLUTICASONE PROPIONATE [Concomitant]
  4. LISINOPRIL [Concomitant]
  5. DONEPEZIL HCL [Suspect]
     Indication: PRODUCT USED FOR UNKNOWN INDICATION
  6. LANSOPRAZOLE [Concomitant]
  7. ALBUTEROL SULFATE [Concomitant]
  8. ASPIRIN [Concomitant]

REACTIONS (1)
  - DERMATITIS BULLOUS [None]
